FAERS Safety Report 26072401 (Version 2)
Quarter: 2025Q4

REPORT INFORMATION
  Report Type: Spontaneous
  Country: US (occurrence: US)
  Receive Date: 20251120
  Receipt Date: 20251121
  Transmission Date: 20260118
  Serious: No
  Sender: NOVO NORDISK
  Company Number: US-NOVOPROD-1316478

PATIENT
  Age: 70 Year
  Sex: Male

DRUGS (2)
  1. TRESIBA [Suspect]
     Active Substance: INSULIN DEGLUDEC
     Indication: Type 1 diabetes mellitus
     Dosage: 27 UNITS QD
     Route: 058
  2. FIASP [Suspect]
     Active Substance: INSULIN ASPART
     Indication: Type 1 diabetes mellitus
     Dosage: UNK (SLIDING SCALE)
     Route: 058

REACTIONS (5)
  - Visual impairment [Recovered/Resolved]
  - Diabetes mellitus inadequate control [Recovered/Resolved]
  - Therapeutic product effect decreased [Unknown]
  - Product dispensing error [Recovered/Resolved]
  - Product quality issue [Recovered/Resolved]

NARRATIVE: CASE EVENT DATE: 20250103
